FAERS Safety Report 12885769 (Version 1)
Quarter: 2016Q4

REPORT INFORMATION
  Report Type: Spontaneous
  Country: NO (occurrence: NO)
  Receive Date: 20161026
  Receipt Date: 20161026
  Transmission Date: 20170207
  Serious: Yes (Other)
  Sender: FDA-Public Use
  Company Number: NO-AMGEN-NORSP2016144361

PATIENT
  Age: 76 Year
  Sex: Female

DRUGS (13)
  1. VENTOLINE [Concomitant]
     Active Substance: ALBUTEROL
     Dosage: UNK
  2. XARELTO [Concomitant]
     Active Substance: RIVAROXABAN
     Dosage: UNK
  3. PANODIL [Concomitant]
     Active Substance: ACETAMINOPHEN
     Dosage: UNK
  4. ATROVENT [Concomitant]
     Active Substance: IPRATROPIUM BROMIDE
     Dosage: UNK
  5. KALSIUM MED VITAMIN D3 FARMAGON [Concomitant]
     Dosage: UNK
  6. BISOPROLOL SANDOZ [Concomitant]
     Active Substance: BISOPROLOL
     Dosage: UNK
  7. ZYLORIC [Concomitant]
     Active Substance: ALLOPURINOL
     Dosage: UNK
  8. PROLIA [Suspect]
     Active Substance: DENOSUMAB
     Indication: OSTEOPOROSIS
     Dosage: 60 MG, Q6MO
     Route: 065
     Dates: start: 201302
  9. SPIRONOLACTONE ORION [Concomitant]
     Active Substance: SPIRONOLACTONE
     Dosage: UNK
  10. DUROFERON [Concomitant]
     Active Substance: FERROUS SULFATE
     Dosage: UNK
  11. PREDNISOLON ALTERNOVA [Concomitant]
     Active Substance: PREDNISOLONE
     Dosage: 5 MG, QD
  12. LANOXIN [Concomitant]
     Active Substance: DIGOXIN
     Dosage: UNK
  13. ZOPICLONE ACTAVIS [Concomitant]
     Active Substance: ZOPICLONE
     Dosage: UNK

REACTIONS (1)
  - Osteonecrosis of jaw [Not Recovered/Not Resolved]

NARRATIVE: CASE EVENT DATE: 201601
